FAERS Safety Report 16822531 (Version 1)
Quarter: 2019Q3

REPORT INFORMATION
  Report Type: Spontaneous
  Country: DE (occurrence: DE)
  Receive Date: 20190918
  Receipt Date: 20190918
  Transmission Date: 20191005
  Serious: Yes (Hospitalization, Other)
  Sender: FDA-Public Use
  Company Number: DE-PFIZER INC-2019399964

PATIENT
  Age: 61 Year
  Sex: Female
  Weight: 70 kg

DRUGS (3)
  1. AMLODIPINE BESILATE [Suspect]
     Active Substance: AMLODIPINE BESYLATE
     Dosage: 10 DF, SINGLE DOSE
     Dates: start: 20190823, end: 20190823
  2. VALSACOR [Suspect]
     Active Substance: VALSARTAN
     Dosage: 5 DF, SINGLE DOSE
     Dates: start: 20190823, end: 20190823
  3. CLOPIDOGREL [Suspect]
     Active Substance: CLOPIDOGREL BISULFATE
     Dosage: 8 DF, SINGLE DOSE
     Dates: start: 20190823, end: 20190823

REACTIONS (5)
  - Aggression [Unknown]
  - Overdose [Unknown]
  - Melaena [Recovered/Resolved]
  - Blood alcohol increased [Unknown]
  - Hypotension [Unknown]

NARRATIVE: CASE EVENT DATE: 20190823
